FAERS Safety Report 8169845-9 (Version None)
Quarter: 2012Q1

REPORT INFORMATION
  Report Type: 
  Country: None (occurrence: None)
  Receive Date: 20120228
  Receipt Date: 20120220
  Transmission Date: 20120608
  Serious: Yes (Life-Threatening, Other)
  Sender: FDA-Public Use
  Company Number: KW-ROXANE LABORATORIES, INC.-2012-RO-00680RO

PATIENT
  Age: 20 Year
  Sex: Female

DRUGS (6)
  1. CYCLOPHOSPHAMIDE [Suspect]
     Indication: SYSTEMIC LUPUS ERYTHEMATOSUS
     Dosage: 1 G
     Route: 042
  2. CYCLOPHOSPHAMIDE [Suspect]
     Indication: PULMONARY ALVEOLAR HAEMORRHAGE
  3. METHYLPREDNISOLONE [Suspect]
     Indication: SYSTEMIC LUPUS ERYTHEMATOSUS
     Dosage: 1 G
     Route: 042
  4. PREDNISONE [Suspect]
     Indication: SYSTEMIC LUPUS ERYTHEMATOSUS
     Dosage: 60 MG
     Route: 048
  5. METHYLPREDNISOLONE [Suspect]
     Indication: PULMONARY ALVEOLAR HAEMORRHAGE
  6. PREDNISONE [Suspect]
     Indication: PULMONARY ALVEOLAR HAEMORRHAGE

REACTIONS (2)
  - URINARY TRACT INFECTION [None]
  - RESPIRATORY DISTRESS [None]
